FAERS Safety Report 5747837-4 (Version None)
Quarter: 2008Q2

REPORT INFORMATION
  Report Type: 
  Country: None (occurrence: None)
  Receive Date: 20080523
  Receipt Date: 20080513
  Transmission Date: 20081010
  Serious: Yes (Death, Hospitalization)
  Sender: FDA-Public Use
  Company Number: US-ROCHE-542684

PATIENT
  Sex: Female
  Weight: 75.3 kg

DRUGS (11)
  1. XELODA [Suspect]
     Route: 065
     Dates: start: 20071210
  2. ARANESP [Suspect]
     Dosage: END OF STUDY: 10 JAN 2008
     Route: 058
     Dates: start: 20071210, end: 20071231
  3. CADUET [Concomitant]
     Route: 048
     Dates: start: 20050101
  4. CADUET [Concomitant]
     Route: 048
     Dates: start: 20050101
  5. AVANDIA [Concomitant]
     Route: 048
     Dates: start: 20050101
  6. AMARYL [Concomitant]
     Route: 048
     Dates: start: 20050101
  7. OXANDRIN [Concomitant]
     Route: 048
     Dates: start: 20071210
  8. FERRO-SEQUELS [Concomitant]
     Route: 048
     Dates: start: 20071210
  9. FERRO-SEQUELS [Concomitant]
     Route: 048
     Dates: start: 20071210
  10. SPIROLACTONE [Concomitant]
     Route: 048
     Dates: start: 20051205
  11. LISINOPRIL [Concomitant]
     Route: 048
     Dates: start: 20050101

REACTIONS (3)
  - BREAST CANCER METASTATIC [None]
  - DEHYDRATION [None]
  - HYPERGLYCAEMIA [None]
